FAERS Safety Report 6474954-6 (Version None)
Quarter: 2009Q4

REPORT INFORMATION
  Report Type: 
  Country: None (occurrence: None)
  Receive Date: 20091204
  Receipt Date: 20090608
  Transmission Date: 20100525
  Serious: Yes (Death, Hospitalization)
  Sender: FDA-Public Use
  Company Number: US-ELI_LILLY_AND_COMPANY-US200903002728

PATIENT
  Sex: Male

DRUGS (7)
  1. HUMALOG MIX 75/25 [Suspect]
     Indication: TYPE 2 DIABETES MELLITUS
     Dosage: 30 U, UNK
     Dates: start: 20080601
  2. HUMALOG MIX 75/25 [Suspect]
     Dosage: 20 U, UNK
  3. HUMALOG MIX 75/25 [Suspect]
     Dosage: 40 U, UNK
  4. HUMALOG MIX 75/25 [Suspect]
     Dosage: 30 U, UNK
  5. LEVEMIR [Concomitant]
     Indication: BLOOD GLUCOSE INCREASED
     Dates: start: 20080601
  6. NOVOLOG [Concomitant]
     Indication: BLOOD GLUCOSE INCREASED
     Dates: start: 20080601
  7. CHEMOTHERAPEUTICS NOS [Concomitant]

REACTIONS (5)
  - BRAIN CANCER METASTATIC [None]
  - CONFUSIONAL STATE [None]
  - GAIT DISTURBANCE [None]
  - PNEUMONIA [None]
  - T-CELL LYMPHOMA RECURRENT [None]
